FAERS Safety Report 18991709 (Version 1)
Quarter: 2021Q1

REPORT INFORMATION
  Report Type: Spontaneous
  Country: US (occurrence: US)
  Receive Date: 20210309
  Receipt Date: 20210309
  Transmission Date: 20210420
  Serious: Yes (Other)
  Sender: FDA-Public Use
  Company Number: None

PATIENT
  Sex: Male

DRUGS (1)
  1. DESITIN MAXIMUM STRENGTH DIAPER RASH [Suspect]
     Active Substance: ZINC OXIDE
     Indication: DERMATITIS DIAPER
     Route: 061
     Dates: end: 20210308

REACTIONS (2)
  - Skin burning sensation [None]
  - Erythema [None]
